FAERS Safety Report 23429519 (Version 1)
Quarter: 2024Q1

REPORT INFORMATION
  Report Type: Spontaneous
  Country: US (occurrence: US)
  Receive Date: 20240122
  Receipt Date: 20240122
  Transmission Date: 20240410
  Serious: No
  Sender: FDA-Public Use
  Company Number: TEVA-VS-3138328

PATIENT

DRUGS (2)
  1. AJOVY [Suspect]
     Active Substance: FREMANEZUMAB-VFRM
     Indication: Product used for unknown indication
     Dosage: AJOVY AT 675 MG QUARTERLY
     Route: 065
  2. AJOVY [Suspect]
     Active Substance: FREMANEZUMAB-VFRM

REACTIONS (2)
  - Skin reaction [Unknown]
  - Product storage error [Unknown]

NARRATIVE: CASE EVENT DATE: 20231101
